FAERS Safety Report 17090725 (Version 3)
Quarter: 2020Q1

REPORT INFORMATION
  Report Type: Report from Study
  Country: US (occurrence: US)
  Receive Date: 20191129
  Receipt Date: 20200313
  Transmission Date: 20200409
  Serious: No
  Sender: FDA-Public Use
  Company Number: NVSC2019US049891

PATIENT
  Age: 51 Year
  Sex: Female

DRUGS (2)
  1. TREPROSTINIL. [Suspect]
     Active Substance: TREPROSTINIL
     Indication: PULMONARY HYPERTENSION
     Dosage: 15 NG/KG/MIN, CONT
     Route: 042
     Dates: start: 20191106
  2. TREPROSTINIL. [Suspect]
     Active Substance: TREPROSTINIL
     Dosage: 15.5 NG/KG/MIN, CONT
     Route: 042
     Dates: start: 20191220

REACTIONS (10)
  - Weight decreased [Unknown]
  - Alopecia [Unknown]
  - Nasopharyngitis [Unknown]
  - Chest discomfort [Unknown]
  - Nausea [Unknown]
  - Vomiting [Unknown]
  - Pruritus [Unknown]
  - Pain in jaw [Unknown]
  - Abdominal discomfort [Unknown]
  - Dizziness [Unknown]

NARRATIVE: CASE EVENT DATE: 201911
